FAERS Safety Report 9409318 (Version 2)
Quarter: 2013Q4

REPORT INFORMATION
  Report Type: Spontaneous
  Country: US (occurrence: US)
  Receive Date: 20130719
  Receipt Date: 20131101
  Transmission Date: 20140711
  Serious: Yes (Other)
  Sender: FDA-Public Use
  Company Number: US-BAYER-2013-084074

PATIENT
  Age: 29 Year
  Sex: Female
  Weight: 71.2 kg

DRUGS (3)
  1. MIRENA [Suspect]
     Indication: CONTRACEPTION
     Dosage: 20 MCG/24HR, CONT
     Route: 015
     Dates: start: 20100809, end: 20110623
  2. EMERGEN-C [Concomitant]
  3. JOLIVETTE-28 [Concomitant]

REACTIONS (15)
  - Uterine perforation [None]
  - Haemorrhage in pregnancy [None]
  - Abortion spontaneous [None]
  - Pregnancy with contraceptive device [None]
  - Genital haemorrhage [None]
  - Device dislocation [None]
  - Abdominal pain [None]
  - Injury [None]
  - Emotional distress [None]
  - Drug ineffective [None]
  - Depression [None]
  - Anxiety [None]
  - Depressed mood [None]
  - Fear [None]
  - Internal injury [None]
